FAERS Safety Report 6277853-8 (Version None)
Quarter: 2009Q3

REPORT INFORMATION
  Report Type: 
  Country: None (occurrence: None)
  Receive Date: 20090722
  Receipt Date: 20090713
  Transmission Date: 20100115
  Serious: Yes (Hospitalization, Other)
  Sender: FDA-Public Use
  Company Number: CA-JNJFOC-20090704171

PATIENT
  Sex: Female
  Weight: 48 kg

DRUGS (13)
  1. REMICADE [Suspect]
     Route: 042
  2. REMICADE [Suspect]
     Route: 042
  3. REMICADE [Suspect]
     Indication: CROHN'S DISEASE
     Route: 042
  4. MIRTAZAPINE [Concomitant]
  5. PENTASA [Concomitant]
  6. METHOTREXATE [Concomitant]
  7. METHOTRIMEPRAZINE [Concomitant]
     Dosage: DOSE 5 TO 10 MG, AT HOUR OF SLEEP, AS NEEDED
  8. ALBUTEROL [Concomitant]
     Dosage: 2 PUFFS QID AS NEEDED
  9. MIRAPEX [Concomitant]
     Dosage: 0.5 MG ^MIDI^ AND 1 MG AT THE HOUR OF SLEEP
  10. ALPRAZOLAM [Concomitant]
  11. ALENDRONATE SODIUM [Concomitant]
  12. ADVAIR HFA [Concomitant]
     Dosage: 125 MCG, 2 PUFFS, TWICE A DAY
  13. FOLIC ACID [Concomitant]

REACTIONS (1)
  - DEPRESSION [None]
